FAERS Safety Report 12491441 (Version 1)
Quarter: 2016Q2

REPORT INFORMATION
  Report Type: Spontaneous
  Country: HU (occurrence: HU)
  Receive Date: 20160623
  Receipt Date: 20160623
  Transmission Date: 20160815
  Serious: Yes (Other)
  Sender: FDA-Public Use
  Company Number: HU-ROCHE-1776714

PATIENT
  Age: 59 Year
  Sex: Male

DRUGS (5)
  1. CYCLOSPORIN A [Suspect]
     Active Substance: CYCLOSPORINE
     Indication: PROPHYLAXIS AGAINST TRANSPLANT REJECTION
     Route: 065
     Dates: start: 2000, end: 200902
  2. TACROLIMUS. [Suspect]
     Active Substance: TACROLIMUS
     Indication: PROPHYLAXIS AGAINST TRANSPLANT REJECTION
     Route: 065
     Dates: start: 200902, end: 201303
  3. PREDNISOLONE. [Suspect]
     Active Substance: PREDNISOLONE
     Indication: PROPHYLAXIS AGAINST TRANSPLANT REJECTION
     Route: 065
     Dates: start: 2000, end: 2011
  4. EVEROLIMUS [Suspect]
     Active Substance: EVEROLIMUS
     Indication: PROPHYLAXIS AGAINST TRANSPLANT REJECTION
     Route: 065
     Dates: start: 201303
  5. MYCOPHENOLATE MOFETIL. [Suspect]
     Active Substance: MYCOPHENOLATE MOFETIL
     Indication: PROPHYLAXIS AGAINST TRANSPLANT REJECTION
     Route: 065
     Dates: start: 2000

REACTIONS (7)
  - Keratoacanthoma [Recovered/Resolved]
  - Hyperkeratosis [Recovered/Resolved]
  - Sepsis [Unknown]
  - Basosquamous carcinoma [Recovered/Resolved]
  - Actinic keratosis [Recovered/Resolved]
  - Squamous cell carcinoma [Recovered/Resolved]
  - Basal cell carcinoma [Recovered/Resolved]
